FAERS Safety Report 7025652-1 (Version None)
Quarter: 2010Q4

REPORT INFORMATION
  Report Type: 
  Country: None (occurrence: None)
  Receive Date: 20101004
  Receipt Date: 20100913
  Transmission Date: 20110411
  Serious: Yes (Hospitalization)
  Sender: FDA-Public Use
  Company Number: US-BAYER-200942249NA

PATIENT
  Age: 34 Year
  Sex: Female
  Weight: 80 kg

DRUGS (7)
  1. YAZ [Suspect]
     Indication: ACNE
     Route: 048
     Dates: start: 20030921, end: 20050306
  2. YAZ [Suspect]
     Route: 048
     Dates: start: 20050403, end: 20050625
  3. YAZ [Suspect]
     Route: 048
     Dates: start: 20070822, end: 20080419
  4. YASMIN [Suspect]
     Indication: ACNE
     Route: 048
     Dates: start: 20030921, end: 20050306
  5. YASMIN [Suspect]
     Route: 048
     Dates: start: 20070822, end: 20080419
  6. YASMIN [Suspect]
     Route: 048
     Dates: start: 20050403, end: 20050625
  7. DROSPIRENONE AND ETHINYL ESTRADIOL [Suspect]
     Indication: ORAL CONTRACEPTION
     Route: 048
     Dates: start: 20080710, end: 20081228

REACTIONS (7)
  - ABDOMINAL PAIN UPPER [None]
  - CHOLECYSTITIS CHRONIC [None]
  - CHOLELITHIASIS [None]
  - CHROMATURIA [None]
  - JAUNDICE [None]
  - NAUSEA [None]
  - PAIN [None]
